FAERS Safety Report 4932208-0 (Version None)
Quarter: 2006Q1

REPORT INFORMATION
  Report Type: 
  Country: None (occurrence: None)
  Receive Date: 20060228
  Receipt Date: 20060210
  Transmission Date: 20060701
  Serious: Yes (Hospitalization)
  Sender: FDA-Public Use
  Company Number: DSA_60681_2006

PATIENT
  Age: 70 Year
  Sex: Female

DRUGS (10)
  1. ORSTANORM [Suspect]
     Indication: HYPOTENSION
     Dosage: DF PO  A FEW YEARS
     Route: 048
     Dates: end: 20050816
  2. LEVAXIN [Concomitant]
  3. EFFORTIL [Concomitant]
  4. KININ [Concomitant]
  5. ZYLORIC [Concomitant]
  6. SPIRONOLAKTON [Concomitant]
  7. DAONIL [Concomitant]
  8. FUROSEMIDE [Concomitant]
  9. TROMBYL [Concomitant]
  10. ESTRADIOL [Concomitant]

REACTIONS (8)
  - ABDOMINAL DISCOMFORT [None]
  - ANAEMIA [None]
  - C-REACTIVE PROTEIN INCREASED [None]
  - CHEST DISCOMFORT [None]
  - COUGH [None]
  - DISCOMFORT [None]
  - FATIGUE [None]
  - RED BLOOD CELL SEDIMENTATION RATE INCREASED [None]
